FAERS Safety Report 14337050 (Version 1)
Quarter: 2017Q4

REPORT INFORMATION
  Report Type: Report from Study
  Country: US (occurrence: US)
  Receive Date: 20171229
  Receipt Date: 20171229
  Transmission Date: 20180321
  Serious: Yes (Other)
  Sender: FDA-Public Use
  Company Number: PHEH2017US041683

PATIENT
  Sex: Male

DRUGS (1)
  1. ENTRESTO [Suspect]
     Active Substance: SACUBITRIL\VALSARTAN
     Indication: CARDIAC FAILURE CONGESTIVE
     Dosage: 1 DF (49 MG SACUBIRIL, 51 MG VALSARTAN), UNK
     Route: 048
     Dates: start: 20171026

REACTIONS (3)
  - Cataract [Unknown]
  - Dyspnoea [Unknown]
  - Cardiac failure congestive [Unknown]
